FAERS Safety Report 26028220 (Version 1)
Quarter: 2025Q4

REPORT INFORMATION
  Report Type: Spontaneous
  Country: US (occurrence: US)
  Receive Date: 20251111
  Receipt Date: 20251111
  Transmission Date: 20260119
  Serious: No
  Sender: OPTINOSE INC
  Company Number: US-OptiNose US, Inc-2024OPT000154

PATIENT
  Sex: Female

DRUGS (5)
  1. XHANCE [Suspect]
     Active Substance: FLUTICASONE PROPIONATE
     Indication: Nasal inflammation
     Dosage: 186 MICROGRAM, BID
     Route: 045
  2. DEVICE [Suspect]
     Active Substance: DEVICE
     Indication: Nasal inflammation
     Dosage: UNK UNK
  3. MELOXICAM [Concomitant]
     Active Substance: MELOXICAM
     Indication: Antiinflammatory therapy
     Dosage: UNK UNK
     Dates: start: 20240924
  4. CITALOPRAM [Concomitant]
     Active Substance: CITALOPRAM
     Indication: Anxiety
     Dosage: UNK UNK
     Dates: start: 20240920
  5. AMLODIPINE [Concomitant]
     Active Substance: AMLODIPINE BESYLATE
     Indication: Blood pressure increased
     Dosage: UNK UNK
     Dates: start: 20230920

REACTIONS (5)
  - Sinonasal obstruction [Unknown]
  - Epistaxis [Unknown]
  - Nasal dryness [Unknown]
  - Drug ineffective [Unknown]
  - Off label use [Unknown]
